FAERS Safety Report 5968104-X (Version None)
Quarter: 2008Q4

REPORT INFORMATION
  Report Type: 
  Country: None (occurrence: None)
  Receive Date: 20081121
  Receipt Date: 20081027
  Transmission Date: 20090506
  Serious: Yes (Hospitalization)
  Sender: FDA-Public Use
  Company Number: 2008S1019366

PATIENT
  Age: 54 Year
  Sex: Female
  Weight: 104 kg

DRUGS (1)
  1. TAMOXIFEN CITRATE [Suspect]
     Indication: BREAST CANCER
     Dosage: 20 MG; DAILY;
     Dates: start: 20070130

REACTIONS (9)
  - ARTHRALGIA [None]
  - BONE PAIN [None]
  - ENDOMETRIOSIS [None]
  - FLUSHING [None]
  - NAUSEA [None]
  - OVARIAN ADENOMA [None]
  - OVARIAN CYST [None]
  - SALPINGITIS [None]
  - UTERINE LEIOMYOMA [None]
